FAERS Safety Report 5524202-6 (Version None)
Quarter: 2007Q4

REPORT INFORMATION
  Report Type: 
  Country: None (occurrence: None)
  Receive Date: 20071121
  Receipt Date: 20071113
  Transmission Date: 20080405
  Serious: Yes (Other)
  Sender: FDA-Public Use
  Company Number: FR-PFIZER INC-2007077461

PATIENT
  Sex: Female
  Weight: 58 kg

DRUGS (1)
  1. CHAMPIX [Suspect]
     Indication: SMOKING CESSATION THERAPY
     Route: 048
     Dates: start: 20070828, end: 20070910

REACTIONS (3)
  - HAEMATOCHEZIA [None]
  - NAUSEA [None]
  - PHARYNGOLARYNGEAL PAIN [None]
